FAERS Safety Report 4496589-7 (Version None)
Quarter: 2004Q4

REPORT INFORMATION
  Report Type: 
  Country: None (occurrence: None)
  Receive Date: 20041109
  Receipt Date: 20041103
  Transmission Date: 20050328
  Serious: Yes (Hospitalization)
  Sender: FDA-Public Use
  Company Number: FR-BRISTOL-MYERS SQUIBB COMPANY-12756003

PATIENT
  Age: 83 Year
  Sex: Female

DRUGS (1)
  1. SINEMET [Suspect]
     Indication: PARKINSON'S DISEASE
     Route: 048
     Dates: start: 20031006, end: 20031107

REACTIONS (4)
  - AKINESIA [None]
  - BRADYPHRENIA [None]
  - MALAISE [None]
  - SPEECH DISORDER [None]
